FAERS Safety Report 9665648 (Version 4)
Quarter: 2013Q4

REPORT INFORMATION
  Report Type: Report from Study
  Country: RU (occurrence: RU)
  Receive Date: 20131104
  Receipt Date: 20131227
  Transmission Date: 20140711
  Serious: Yes (Other)
  Sender: FDA-Public Use
  Company Number: RU-SA-2013SA109208

PATIENT
  Age: 70 Year
  Sex: Female

DRUGS (5)
  1. PLAVIX [Suspect]
     Indication: THROMBOSIS PROPHYLAXIS
     Route: 048
     Dates: start: 2013, end: 2013
  2. PLAVIX [Suspect]
     Indication: THROMBOSIS PROPHYLAXIS
     Route: 048
     Dates: start: 2013, end: 2013
  3. PHYSIOTENS [Concomitant]
     Indication: HYPERTENSION
     Route: 048
  4. TORVACARD [Concomitant]
     Route: 048
  5. CARDIOMAGNYL [Concomitant]
     Indication: HYPERTENSION
     Route: 048

REACTIONS (2)
  - Chest pain [Not Recovered/Not Resolved]
  - Contusion [Recovered/Resolved]
